FAERS Safety Report 24082172 (Version 1)
Quarter: 2024Q3

REPORT INFORMATION
  Report Type: Spontaneous
  Country: CN (occurrence: CN)
  Receive Date: 20240712
  Receipt Date: 20240712
  Transmission Date: 20241016
  Serious: Yes (Hospitalization, Other)
  Sender: RANBAXY
  Company Number: CN-SUN PHARMACEUTICAL INDUSTRIES LTD-2024R1-455870

PATIENT
  Age: 21 Month
  Sex: Male
  Weight: 11 kg

DRUGS (6)
  1. MIDAZOLAM [Suspect]
     Active Substance: MIDAZOLAM
     Indication: Anaesthesia procedure
     Dosage: 0.75 MILLIGRAM
     Route: 065
  2. FENTANYL [Suspect]
     Active Substance: FENTANYL\FENTANYL CITRATE
     Indication: Anaesthesia procedure
     Dosage: 20 MICROGRAM
     Route: 065
  3. SEVOFLURANE [Suspect]
     Active Substance: SEVOFLURANE
     Indication: Anaesthesia procedure
     Route: 065
  4. ATROPINE [Suspect]
     Active Substance: ATROPINE
     Indication: Secretion discharge
     Dosage: 0.25 MILLIGRAM
     Route: 042
  5. DEXAMETHASONE [Suspect]
     Active Substance: DEXAMETHASONE
     Indication: Anaesthesia procedure
     Dosage: 2 MILLIGRAM
     Route: 042
  6. ETOMIDATE [Suspect]
     Active Substance: ETOMIDATE
     Indication: Anaesthesia procedure
     Dosage: 6 MILLIGRAM
     Route: 065

REACTIONS (1)
  - Condition aggravated [Unknown]
